FAERS Safety Report 10066960 (Version 2)
Quarter: 2014Q2

REPORT INFORMATION
  Report Type: Spontaneous
  Country: GB (occurrence: GB)
  Receive Date: 20140409
  Receipt Date: 20140422
  Transmission Date: 20141212
  Serious: Yes (Other)
  Sender: FDA-Public Use
  Company Number: GB-PFIZER INC-2014097537

PATIENT
  Sex: 0

DRUGS (18)
  1. PREGABALIN [Suspect]
     Indication: NEURALGIA
     Dosage: ONE TWICE DAILY FOR A WEEK.
     Route: 048
     Dates: start: 20131112, end: 20131118
  2. PREGABALIN [Suspect]
     Dosage: 2 IN THE MORNING, 2 AT LUNCHTIME AND 1 AT NIGHT FOR A WEEK.
     Route: 048
     Dates: start: 20131119, end: 20131125
  3. PREGABALIN [Suspect]
     Dosage: 1 MORNING, 2 LUNCHTIME, 1 AT NIGHT FOR A WEEK.
     Route: 048
     Dates: start: 20131126, end: 20131202
  4. PREGABALIN [Suspect]
     Dosage: 50 MG, 3X/DAY
     Route: 048
     Dates: start: 20131203, end: 20131216
  5. PREGABALIN [Suspect]
     Dosage: 100 MG, TWO THREE TIMES DAILY
     Route: 048
     Dates: end: 20140206
  6. WHITE SOFT PARAFFIN [Concomitant]
  7. CAVERJECT [Concomitant]
     Dosage: 10 UG, AS DIRECTED
  8. RAMIPRIL [Concomitant]
     Dosage: 5 MG, 1X/DAY
  9. RAMIPRIL [Concomitant]
     Dosage: 2.5 MG, 1X/DAY
  10. GLYCERYL TRINITRATE [Concomitant]
     Dosage: APPLY 2.5CM OF OINTMENT TO BACK OF FINGERS.
  11. NITROFURANTOIN [Concomitant]
     Dosage: 100 MG, 1X/DAY
  12. TRIMETHOPRIM [Concomitant]
     Dosage: 100 MG, 1X/DAY
  13. TRIMETHOPRIM [Concomitant]
     Dosage: 200 MG, 2X/DAY
  14. OXYBUTYNIN [Concomitant]
     Dosage: 10 MG, 1X/DAY
  15. OXYBUTYNIN [Concomitant]
     Dosage: 5 MG, 1X/DAY
  16. SENNA [Concomitant]
     Dosage: 7.5 MG, 2X/DAY
  17. LANSOPRAZOLE [Concomitant]
     Dosage: 15 MG, 1X/DAY
  18. PROMETHAZINE HYDROCHLORIDE [Concomitant]
     Dosage: 10 MG, 1X/DAY

REACTIONS (5)
  - Vision blurred [Recovering/Resolving]
  - Dizziness [Recovering/Resolving]
  - Vomiting [Recovering/Resolving]
  - Constipation [Recovering/Resolving]
  - Fall [Recovering/Resolving]
